FAERS Safety Report 9661571 (Version 2)
Quarter: 2013Q4

REPORT INFORMATION
  Report Type: Spontaneous
  Country: US (occurrence: US)
  Receive Date: 20131031
  Receipt Date: 20131031
  Transmission Date: 20140711
  Serious: No
  Sender: FDA-Public Use
  Company Number: US-PURDUE-USA-2010-0055524

PATIENT
  Age: 48 Year
  Sex: Male
  Weight: 100.23 kg

DRUGS (1)
  1. OXYCONTIN (NDA 22-272) [Suspect]
     Indication: ANKYLOSING SPONDYLITIS
     Dosage: 10 MG, BID
     Dates: start: 20101214, end: 20101215

REACTIONS (3)
  - Drug effect increased [Recovered/Resolved]
  - Nausea [Recovered/Resolved]
  - Fatigue [Recovered/Resolved]
